FAERS Safety Report 13788773 (Version 1)
Quarter: 2017Q3

REPORT INFORMATION
  Report Type: Spontaneous
  Country: US (occurrence: US)
  Receive Date: 20170725
  Receipt Date: 20170725
  Transmission Date: 20171127
  Serious: No
  Sender: FDA-Public Use
  Company Number: US-JNJFOC-20170711031

PATIENT
  Age: 74 Year
  Sex: Male
  Weight: 111 kg

DRUGS (1)
  1. IMBRUVICA [Suspect]
     Active Substance: IBRUTINIB
     Indication: CHRONIC LYMPHOCYTIC LEUKAEMIA
     Route: 048
     Dates: start: 20161116

REACTIONS (2)
  - Cystitis [Unknown]
  - Chromaturia [Unknown]

NARRATIVE: CASE EVENT DATE: 201706
